FAERS Safety Report 15674443 (Version 1)
Quarter: 2018Q4

REPORT INFORMATION
  Report Type: Spontaneous
  Country: IS (occurrence: IS)
  Receive Date: 20181130
  Receipt Date: 20181130
  Transmission Date: 20190205
  Serious: Yes (Life-Threatening, Other)
  Sender: FDA-Public Use
  Company Number: IS-TEVA-2018-IS-980360

PATIENT
  Age: 70 Year
  Sex: Male
  Weight: 80 kg

DRUGS (5)
  1. WARFARIN - TABLET [Suspect]
     Active Substance: WARFARIN
     Indication: EMBOLISM ARTERIAL
  2. PREDNISOLONE ACTAVIS 5 MG T?FLUR [Concomitant]
  3. OMEPRAZOL ACTAVIS 20 MG MAGAS?RU?OLIN H?R? HYLKI [Concomitant]
     Active Substance: OMEPRAZOLE
     Route: 065
  4. WARFARIN - TABLET [Suspect]
     Active Substance: WARFARIN
     Indication: ATRIAL FIBRILLATION
     Dosage: ACCORDING TO MEASUREMENTS
     Route: 065
     Dates: start: 20160909, end: 20181023
  5. ROSUVASTATIN ACTAVIS 20 MG FILMUH??A?AR T?FLUR [Concomitant]
     Route: 065

REACTIONS (4)
  - Cerebral haemorrhage [Not Recovered/Not Resolved]
  - Facial paralysis [Not Recovered/Not Resolved]
  - Monoplegia [Not Recovered/Not Resolved]
  - Aphasia [Not Recovered/Not Resolved]

NARRATIVE: CASE EVENT DATE: 20181023
